FAERS Safety Report 15388475 (Version 1)
Quarter: 2018Q3

REPORT INFORMATION
  Report Type: Spontaneous
  Country: JP (occurrence: JP)
  Receive Date: 20180915
  Receipt Date: 20180915
  Transmission Date: 20181010
  Serious: Yes (Other)
  Sender: FDA-Public Use
  Company Number: JP-009507513-1809JPN001517J

PATIENT
  Age: 4 Decade
  Sex: Female

DRUGS (1)
  1. MARVELON [Suspect]
     Active Substance: DESOGESTREL\ETHINYL ESTRADIOL
     Indication: ENDOMETRIOSIS
     Dosage: 1 DF, QD
     Route: 048
     Dates: start: 2008

REACTIONS (3)
  - Off label use [Unknown]
  - Portal shunt [Unknown]
  - Focal nodular hyperplasia [Unknown]

NARRATIVE: CASE EVENT DATE: 2008
